FAERS Safety Report 16623828 (Version 1)
Quarter: 2019Q3

REPORT INFORMATION
  Report Type: Spontaneous
  Country: DE (occurrence: DE)
  Receive Date: 20190724
  Receipt Date: 20190724
  Transmission Date: 20191004
  Serious: Yes (Hospitalization)
  Sender: FDA-Public Use
  Company Number: DE-TEVA-2019-DE-1081817

PATIENT
  Age: 14 Year
  Sex: Male
  Weight: 101 kg

DRUGS (8)
  1. PREDNISOLON [Suspect]
     Active Substance: PREDNISOLONE
     Indication: IMMUNOSUPPRESSION
     Dosage: 10 MILLIGRAM DAILY; DAILY DOSE: 10 MG MILLGRAM(S) EVERY DAYS
     Route: 048
     Dates: start: 201803, end: 20190323
  2. OMEPRAZOL [Concomitant]
     Active Substance: OMEPRAZOLE
     Dosage: 40 MILLIGRAM DAILY; DAILY DOSE: 40 MG MILLGRAM(S) EVERY DAYS
     Route: 048
     Dates: start: 201707
  3. COLECALCIFEROL [Concomitant]
     Active Substance: CHOLECALCIFEROL
     Indication: VITAMIN D DEFICIENCY
     Dosage: 1000 IU (INTERNATIONAL UNIT) DAILY; DAILY DOSE: 1000 IU INTERNATIONAL UNIT(S) EVERY DAYS
     Route: 048
     Dates: start: 201501
  4. HYDROXYCHLOROQUIN [Concomitant]
     Active Substance: HYDROXYCHLOROQUINE SULFATE
     Indication: PULMONARY HAEMOSIDEROSIS
     Dosage: 400 MILLIGRAM DAILY; DAILY DOSE: 400 MG MILLGRAM(S) EVERY DAYS 2 SEPARATED DOSES
     Route: 048
     Dates: start: 201501
  5. AZITHROMYCIN ANHYDROUS. [Concomitant]
     Active Substance: AZITHROMYCIN ANHYDROUS
     Indication: PROPHYLAXIS
     Dosage: 3X / WEEK
     Route: 048
     Dates: start: 201501
  6. FOLSAEURE [Concomitant]
     Active Substance: FOLIC ACID
     Dosage: DAILY DOSE: 5 MG MILLGRAM(S) EVERY WEEKS
     Route: 048
     Dates: start: 201501
  7. AMOXICILLIN. [Concomitant]
     Active Substance: AMOXICILLIN
     Indication: UPPER RESPIRATORY TRACT INFECTION
     Route: 048
     Dates: start: 20190307, end: 20190323
  8. METHOTREXAT [Suspect]
     Active Substance: METHOTREXATE
     Indication: IMMUNOSUPPRESSION
     Dosage: DAILY DOSE: 20 MG MILLGRAM(S) EVERY WEEKS
     Route: 058
     Dates: start: 201501

REACTIONS (1)
  - Pneumonia [Recovered/Resolved]

NARRATIVE: CASE EVENT DATE: 20190323
